FAERS Safety Report 8763789 (Version 1)
Quarter: 2012Q4

REPORT INFORMATION
  Report Type: 
  Country: FR (occurrence: FR)
  Receive Date: 20120831
  Receipt Date: 20120831
  Transmission Date: 20130627
  Serious: Yes (Hospitalization)
  Sender: FDA-Public Use
  Company Number: FR-PFIZER INC-2012208018

PATIENT
  Age: 61 Year
  Sex: Male

DRUGS (8)
  1. ARACYTINE [Suspect]
     Indication: ACUTE MYELOID LEUKAEMIA
     Dosage: UNK
     Route: 042
     Dates: start: 20120315, end: 20120530
  2. VFEND [Suspect]
     Indication: ANTIFUNGAL PROPHYLAXIS
     Dosage: 250 mg, 2x/day
     Route: 048
     Dates: start: 20120411, end: 20120709
  3. COVERSYL [Concomitant]
     Dosage: 5 mg, 1x/day
  4. INSULIN [Concomitant]
  5. HEMI-DAONIL [Concomitant]
     Dosage: 1.25 mg, 1x/day
  6. BACTRIM FORTE [Concomitant]
     Dosage: 3 DF per week
  7. SPECIAFOLDINE [Concomitant]
     Dosage: 10 mg, 1x/day
  8. ZELITREX [Concomitant]
     Dosage: 500 mg, 1x/day

REACTIONS (1)
  - Polyneuropathy [Not Recovered/Not Resolved]
